FAERS Safety Report 5310505-7 (Version None)
Quarter: 2007Q2

REPORT INFORMATION
  Report Type: 
  Country: None (occurrence: None)
  Receive Date: 20070427
  Receipt Date: 20070427
  Transmission Date: 20071010
  Serious: No
  Sender: FDA-Public Use
  Company Number: SK-BAXTER-2007BH003655

PATIENT
  Age: 34 Year
  Sex: Male

DRUGS (2)
  1. SODIUM CHLORIDE 0.9% IN PLASTIC CONTAINER [Suspect]
     Indication: HYPERTHYROIDISM
     Route: 042
     Dates: start: 20070415, end: 20070415
  2. CALCIUM CHLORATE [Concomitant]
     Route: 042
     Dates: start: 20070415, end: 20070415

REACTIONS (3)
  - BLOOD PRESSURE [None]
  - CHILLS [None]
  - PYREXIA [None]
